FAERS Safety Report 8833898 (Version 1)
Quarter: 2012Q4

REPORT INFORMATION
  Report Type: Spontaneous
  Country: DK (occurrence: None)
  Receive Date: 20121005
  Receipt Date: 20121005
  Transmission Date: 20130627
  Serious: Yes (Other)
  Sender: FDA-Public Use
  Company Number: 2012MA011995

PATIENT
  Age: 29 Year
  Sex: Female

DRUGS (2)
  1. CITALOPRAM HYDROBROMIDE [Suspect]
     Indication: STRESS
     Route: 048
     Dates: start: 20031219, end: 20031229
  2. PREGABALIN [Concomitant]

REACTIONS (9)
  - Homicidal ideation [None]
  - Suicidal ideation [None]
  - Screaming [None]
  - Anger [None]
  - Hallucination, visual [None]
  - Aggression [None]
  - Thinking abnormal [None]
  - Psychological trauma [None]
  - Flashback [None]
